FAERS Safety Report 24210615 (Version 1)
Quarter: 2024Q3

REPORT INFORMATION
  Report Type: Spontaneous
  Country: US (occurrence: US)
  Receive Date: 20240814
  Receipt Date: 20240814
  Transmission Date: 20241016
  Serious: No
  Sender: BRISTOL MYERS SQUIBB
  Company Number: US-BRISTOL-MYERS SQUIBB COMPANY-2024-124442

PATIENT
  Age: 66 Year
  Sex: Female
  Weight: 52.62 kg

DRUGS (10)
  1. ORENCIA [Suspect]
     Active Substance: ABATACEPT
     Indication: Rheumatoid arthritis
     Route: 058
  2. ORENCIA [Suspect]
     Active Substance: ABATACEPT
     Indication: Systemic lupus erythematosus
  3. HYDROCODONE [Concomitant]
     Active Substance: HYDROCODONE
     Indication: Product used for unknown indication
  4. GABAPENTIN [Concomitant]
     Active Substance: GABAPENTIN
     Indication: Product used for unknown indication
  5. AMITRIPTYLINE [Concomitant]
     Active Substance: AMITRIPTYLINE
     Indication: Product used for unknown indication
  6. PREDNISONE [Concomitant]
     Active Substance: PREDNISONE
     Indication: Product used for unknown indication
  7. BONIVA [Concomitant]
     Active Substance: IBANDRONATE SODIUM
     Indication: Product used for unknown indication
  8. IRON [Concomitant]
     Active Substance: IRON
     Indication: Product used for unknown indication
  9. VITAMIN K2 + D3 [COLECALCIFEROL;MENAQUINONE] [Concomitant]
     Indication: Product used for unknown indication
  10. VITAMIN K2 + D3 [COLECALCIFEROL;MENAQUINONE] [Concomitant]
     Indication: Product used for unknown indication

REACTIONS (3)
  - Device operational issue [Unknown]
  - Device leakage [Unknown]
  - Wrong technique in device usage process [Unknown]
